FAERS Safety Report 10201255 (Version 1)
Quarter: 2014Q2

REPORT INFORMATION
  Report Type: Spontaneous
  Country: US (occurrence: US)
  Receive Date: 20140528
  Receipt Date: 20140528
  Transmission Date: 20141212
  Serious: Yes (Life-Threatening, Other)
  Sender: FDA-Public Use
  Company Number: US-ROXANE LABORATORIES, INC.-2014-RO-00796RO

PATIENT
  Age: 49 Year
  Sex: Female

DRUGS (6)
  1. AZATHIOPRINE [Suspect]
     Indication: AUTOIMMUNE DISORDER
     Route: 048
  2. PREDNISONE [Suspect]
     Indication: AUTOIMMUNE DISORDER
     Dosage: 20 MG
     Route: 048
  3. PREDNISONE [Suspect]
     Dosage: 30 MG
     Route: 048
  4. INFLIXIMAB [Suspect]
     Indication: AUTOIMMUNE DISORDER
     Route: 050
  5. METHOTREXATE [Suspect]
     Indication: AUTOIMMUNE DISORDER
     Route: 058
  6. ABATACEPT [Suspect]
     Indication: AUTOIMMUNE DISORDER
     Route: 058

REACTIONS (5)
  - Pulmonary embolism [Unknown]
  - Anaphylactic reaction [Unknown]
  - Deep vein thrombosis [Unknown]
  - Pancreatitis [Unknown]
  - Constipation [Recovered/Resolved]
